FAERS Safety Report 5085388-3 (Version None)
Quarter: 2006Q3

REPORT INFORMATION
  Report Type: 
  Country: None (occurrence: None)
  Receive Date: 20060731
  Receipt Date: 20060411
  Transmission Date: 20061208
  Serious: Yes (Life-Threatening, Disabling, Other)
  Sender: FDA-Public Use
  Company Number: 200610694BWH

PATIENT
  Age: 29 Year
  Sex: Male

DRUGS (4)
  1. AVELOX [Suspect]
     Indication: DRUG USE FOR UNKNOWN INDICATION
     Dosage: 400 MG, QD, ORAL
     Route: 048
     Dates: start: 20060107, end: 20060114
  2. ENTEX PSE [Suspect]
     Dates: start: 20060107, end: 20060114
  3. PROTONIX [Concomitant]
  4. ALBUTEROL [Concomitant]

REACTIONS (6)
  - CONTUSION [None]
  - EUPHORIC MOOD [None]
  - HALLUCINATION, VISUAL [None]
  - INJURY [None]
  - PSYCHOTIC DISORDER [None]
  - SELF INJURIOUS BEHAVIOUR [None]
